FAERS Safety Report 23517129 (Version 1)
Quarter: 2024Q1

REPORT INFORMATION
  Report Type: 
  Country: None (occurrence: None)
  Receive Date: 20240213
  Receipt Date: 20240213
  Transmission Date: 20240410
  Serious: No
  Sender: FDA-Public Use
  Company Number: IT-ROCHE-2774027

PATIENT
  Age: 65 Year
  Weight: 9 kg

DRUGS (4)
  1. COBIMETINIB [Suspect]
     Active Substance: COBIMETINIB
     Dosage: COBIMETINIB IS TAKEN ON A 28-DAY CYCLE. EACH DOSE CONSISTS OF THREE 20 MG TABLETS (60 MG) AND SHOULD
     Dates: start: 20201117, end: 20201207
  2. COBIMETINIB [Suspect]
     Active Substance: COBIMETINIB
     Dates: start: 20210125
  3. VEMURAFENIB [Suspect]
     Active Substance: VEMURAFENIB
     Dosage: VEMURAFENIB IS TAKEN ON A 28-DAY CYCLE. EACH DOSE CONSISTS OF FOUR 240 MG (960 MG) TABLETS TWICE DAI
     Dates: start: 20201117, end: 20201212
  4. VEMURAFENIB [Suspect]
     Active Substance: VEMURAFENIB
     Dates: start: 20210125

REACTIONS (2)
  - Gamma-glutamyltransferase increased [None]
  - Alanine aminotransferase increased [None]

NARRATIVE: CASE EVENT DATE: 20201210
